FAERS Safety Report 24319587 (Version 1)
Quarter: 2024Q3

REPORT INFORMATION
  Report Type: Spontaneous
  Country: CN (occurrence: CN)
  Receive Date: 20240914
  Receipt Date: 20240914
  Transmission Date: 20241017
  Serious: Yes (Other)
  Sender: Chengdu Suncadia Medicine
  Company Number: CN-Chengdu Suncadia Medicine Co., Ltd.-2161606

PATIENT
  Age: 38 Year
  Sex: Male

DRUGS (3)
  1. TACROLIMUS [Suspect]
     Active Substance: TACROLIMUS
     Indication: Nephrotic syndrome
  2. PREDNISONE [Suspect]
     Active Substance: PREDNISONE
  3. RITUXIMAB [Suspect]
     Active Substance: RITUXIMAB
     Dates: start: 20220909

REACTIONS (3)
  - Osteomyelitis fungal [Recovering/Resolving]
  - Product use in unapproved indication [Unknown]
  - Meningitis cryptococcal [Recovering/Resolving]
